FAERS Safety Report 15358182 (Version 1)
Quarter: 2018Q3

REPORT INFORMATION
  Report Type: Spontaneous
  Country: US (occurrence: US)
  Receive Date: 20180906
  Receipt Date: 20180906
  Transmission Date: 20181010
  Serious: No
  Sender: FDA-Public Use
  Company Number: US-PERRIGO-18US002880

PATIENT
  Sex: Female

DRUGS (3)
  1. MINOXIDIL. [Suspect]
     Active Substance: MINOXIDIL
     Indication: ALOPECIA
     Dosage: MORE THAN 1 ML, BID
     Route: 061
     Dates: start: 201607, end: 201707
  2. MINOXIDIL. [Suspect]
     Active Substance: MINOXIDIL
     Dosage: MORE THAN 1 ML, QD
     Route: 061
     Dates: start: 201707, end: 201803
  3. LEVOTHYROXINE. [Concomitant]
     Active Substance: LEVOTHYROXINE
     Indication: THYROID DISORDER
     Dosage: UNK
     Route: 048
     Dates: start: 1985

REACTIONS (7)
  - Incorrect dose administered [Recovered/Resolved]
  - Inappropriate schedule of drug administration [Recovered/Resolved]
  - Application site pruritus [Unknown]
  - Hair colour changes [Unknown]
  - Application site scab [Unknown]
  - Pruritus [Unknown]
  - Erythema [Unknown]

NARRATIVE: CASE EVENT DATE: 201607
